FAERS Safety Report 13934096 (Version 3)
Quarter: 2017Q4

REPORT INFORMATION
  Report Type: Spontaneous
  Country: JP (occurrence: JP)
  Receive Date: 20170904
  Receipt Date: 20171005
  Transmission Date: 20180320
  Serious: Yes (Hospitalization)
  Sender: FDA-Public Use
  Company Number: JP-AMGEN-JPNSP2017133775

PATIENT
  Age: 66 Year
  Sex: Female

DRUGS (12)
  1. HERCEPTIN [Concomitant]
     Active Substance: TRASTUZUMAB
     Indication: BREAST CANCER
     Dosage: 1-2DF, QD
     Route: 041
     Dates: start: 20030604
  2. ASPARA-CA [Concomitant]
     Active Substance: CALCIUM ASPARTATE
     Indication: OSTEOPOROSIS
     Dosage: 200 MG, BID
     Route: 048
     Dates: start: 20140514
  3. ADONA [Concomitant]
     Active Substance: CARBAZOCHROME SODIUM SULFONATE
     Indication: EPISTAXIS
     Dosage: 30 MG, TID
     Route: 048
     Dates: start: 20170528, end: 20170628
  4. NAVELBINE [Concomitant]
     Active Substance: VINORELBINE TARTRATE
     Indication: BREAST CANCER
     Dosage: 20 MG, UNK
     Route: 041
     Dates: start: 20170621
  5. FASLODEX [Concomitant]
     Active Substance: FULVESTRANT
     Indication: BREAST CANCER
     Dosage: 500 MG, UNK
     Route: 030
     Dates: start: 20130206
  6. FASLODEX [Concomitant]
     Active Substance: FULVESTRANT
     Indication: OSTEOPOROSIS
  7. TRANSAMIN [Concomitant]
     Active Substance: TRANEXAMIC ACID
     Indication: EPISTAXIS
     Dosage: 250 MG, TID
     Route: 048
     Dates: start: 20170528, end: 20170628
  8. ALFAROL [Concomitant]
     Active Substance: ALFACALCIDOL
     Indication: OSTEOPOROSIS
     Dosage: 0.5 MUG, QD
     Route: 048
     Dates: start: 20121226
  9. KADCYLA [Concomitant]
     Active Substance: ADO-TRASTUZUMAB EMTANSINE
     Indication: BREAST CANCER
     Dosage: 1-2DF, QD
     Route: 041
     Dates: start: 20170305, end: 20170524
  10. PERJETA [Concomitant]
     Active Substance: PERTUZUMAB
     Indication: BREAST CANCER
     Dosage: 420 MG, UNK
     Route: 041
     Dates: start: 20170621
  11. PRALIA [Suspect]
     Active Substance: DENOSUMAB
     Indication: OSTEOPOROSIS
     Dosage: 60 MG, Q6MO
     Route: 058
     Dates: start: 20140514, end: 20170515
  12. THYRADIN S [Concomitant]
     Active Substance: LEVOTHYROXINE SODIUM
     Indication: HYPOTHYROIDISM
     Dosage: 75 MUG, QD
     Route: 048
     Dates: start: 20160606

REACTIONS (1)
  - Osteonecrosis of jaw [Unknown]

NARRATIVE: CASE EVENT DATE: 20170515
